FAERS Safety Report 10306333 (Version 1)
Quarter: 2014Q3

REPORT INFORMATION
  Report Type: Spontaneous
  Country: IT (occurrence: IT)
  Receive Date: 20140715
  Receipt Date: 20140715
  Transmission Date: 20150326
  Serious: Yes (Hospitalization)
  Sender: FDA-Public Use
  Company Number: IT-PFIZER INC-2014196447

PATIENT
  Age: 85 Year

DRUGS (4)
  1. COUMADIN [Suspect]
     Active Substance: WARFARIN SODIUM
     Indication: THROMBOSIS PROPHYLAXIS
     Dosage: 1 DF, AS NEEDED
     Route: 048
     Dates: start: 20140101
  2. LANSOX [Concomitant]
     Active Substance: LANSOPRAZOLE
     Route: 048
  3. TACHIDOL [Suspect]
     Active Substance: ACETAMINOPHEN\CODEINE PHOSPHATE
     Indication: BACK PAIN
     Dosage: 1 DF, DAILY
     Route: 048
     Dates: start: 20140210, end: 20140212
  4. MEDROL [Suspect]
     Active Substance: METHYLPREDNISOLONE
     Indication: OSTEOARTHRITIS
     Dosage: 0.5 DF, DAILY
     Route: 048
     Dates: start: 20140101

REACTIONS (1)
  - Rectal haemorrhage [Unknown]

NARRATIVE: CASE EVENT DATE: 20140212
